FAERS Safety Report 18277913 (Version 1)
Quarter: 2020Q3

REPORT INFORMATION
  Report Type: Spontaneous
  Country: US (occurrence: US)
  Receive Date: 20200917
  Receipt Date: 20200917
  Transmission Date: 20201103
  Serious: Yes (Death, Other)
  Sender: FDA-Public Use
  Company Number: US-ASTRAZENECA-2020SF18597

PATIENT
  Age: 80 Year
  Sex: Female

DRUGS (1)
  1. SEROQUEL [Suspect]
     Active Substance: QUETIAPINE FUMARATE
     Dosage: DOSE AND FREQUENCY UNKNOWN
     Route: 048

REACTIONS (11)
  - Eye pain [Unknown]
  - Upper limb fracture [Unknown]
  - Neuroleptic malignant syndrome [Unknown]
  - Peripheral swelling [Unknown]
  - Sepsis [Unknown]
  - Altered state of consciousness [Unknown]
  - Death [Fatal]
  - Cerebral cyst [Unknown]
  - Eye contusion [Unknown]
  - Product use issue [Unknown]
  - Limb injury [Unknown]
